FAERS Safety Report 11496371 (Version 1)
Quarter: 2015Q3

REPORT INFORMATION
  Report Type: Spontaneous
  Country: US (occurrence: US)
  Receive Date: 20150911
  Receipt Date: 20150911
  Transmission Date: 20151125
  Serious: Yes (Hospitalization)
  Sender: FDA-Public Use
  Company Number: PHHY2015US108313

PATIENT
  Age: 46 Year
  Sex: Male

DRUGS (1)
  1. SULFAMETHOXAZOLE AND TRIMETHOPRIM [Suspect]
     Active Substance: SULFAMETHOXAZOLE\TRIMETHOPRIM
     Indication: FOLLICULITIS
     Route: 065

REACTIONS (5)
  - Stevens-Johnson syndrome [Recovering/Resolving]
  - Shock [Recovering/Resolving]
  - Renal failure [Recovering/Resolving]
  - Meningitis aseptic [Recovering/Resolving]
  - Adverse drug reaction [Recovering/Resolving]
